FAERS Safety Report 5126164-2 (Version None)
Quarter: 2006Q3

REPORT INFORMATION
  Report Type: 
  Country: None (occurrence: None)
  Receive Date: 20060823
  Receipt Date: 20050916
  Transmission Date: 20061208
  Serious: Yes (Other)
  Sender: FDA-Public Use
  Company Number: 2005130556

PATIENT
  Sex: Male
  Weight: 81.6475 kg

DRUGS (1)
  1. NORVASC [Suspect]
     Indication: BLOOD PRESSURE
     Dosage: 10 MG (10 MG, 1 IN 1 D), UNKNOWN 5 - 7 YEARS AGO

REACTIONS (4)
  - ATRIAL FIBRILLATION [None]
  - GINGIVAL RECESSION [None]
  - GINGIVAL SWELLING [None]
  - GINGIVITIS [None]
